FAERS Safety Report 23168965 (Version 1)
Quarter: 2023Q4

REPORT INFORMATION
  Report Type: Report from Study
  Country: DE (occurrence: DE)
  Receive Date: 20231110
  Receipt Date: 20231110
  Transmission Date: 20240110
  Serious: Yes (Death)
  Sender: FDA-Public Use
  Company Number: DE-JNJFOC-20230735709

PATIENT
  Age: 8 Decade

DRUGS (1)
  1. TECVAYLI [Suspect]
     Active Substance: TECLISTAMAB-CQYV
     Indication: Plasma cell myeloma refractory
     Dosage: DATE OF LAST TECLISTAMAB ADMINISTRATION WAS ON 15-MAY-2023?STRENGTH: 90 MG/ML TREATMENT VIALS
     Route: 058
     Dates: start: 20230419, end: 20230515

REACTIONS (5)
  - Renal failure [Fatal]
  - COVID-19 pneumonia [Fatal]
  - Superinfection bacterial [Fatal]
  - Multiple organ dysfunction syndrome [Fatal]
  - Cardiac failure [Fatal]

NARRATIVE: CASE EVENT DATE: 20230503
